FAERS Safety Report 15433544 (Version 1)
Quarter: 2018Q3

REPORT INFORMATION
  Report Type: Spontaneous
  Country: US (occurrence: US)
  Receive Date: 20180921
  Receipt Date: 20180921
  Transmission Date: 20181010
  Serious: Yes (Other)
  Sender: FDA-Public Use
  Company Number: None

PATIENT
  Age: 54 Year
  Sex: Male

DRUGS (24)
  1. ENTRESTO [Suspect]
     Active Substance: SACUBITRIL\VALSARTAN
     Indication: TACHYCARDIA
     Route: 048
     Dates: start: 20180701, end: 20180801
  2. DUCOSATE [Concomitant]
  3. METFORMIN [Concomitant]
     Active Substance: METFORMIN HYDROCHLORIDE
  4. GABAPENTIN. [Concomitant]
     Active Substance: GABAPENTIN
  5. MECLIZINE [Concomitant]
     Active Substance: MECLIZINE HYDROCHLORIDE
  6. FOLIC B?12 [Concomitant]
  7. FIBER [Concomitant]
     Active Substance: PSYLLIUM HUSK
  8. ENTRESTO [Suspect]
     Active Substance: SACUBITRIL\VALSARTAN
     Indication: VENTRICULAR EXTRASYSTOLES
     Route: 048
     Dates: start: 20180701, end: 20180801
  9. WARFARIN [Concomitant]
     Active Substance: WARFARIN
  10. CRESTOR [Concomitant]
     Active Substance: ROSUVASTATIN CALCIUM
  11. ASPIRIN. [Concomitant]
     Active Substance: ASPIRIN
  12. ONDANSETRON [Concomitant]
     Active Substance: ONDANSETRON
  13. SOLATOLOL [Concomitant]
  14. FERROUS GLUCONATE [Concomitant]
     Active Substance: FERROUS GLUCONATE
  15. VITAMIN C [Concomitant]
     Active Substance: ASCORBIC ACID
  16. NORCO [Concomitant]
     Active Substance: ACETAMINOPHEN\HYDROCODONE BITARTRATE
  17. FLUTICASONE. [Concomitant]
     Active Substance: FLUTICASONE
  18. VITAMIN D [Concomitant]
     Active Substance: CHOLECALCIFEROL
  19. ESCITALOPRAM [Concomitant]
     Active Substance: ESCITALOPRAM OXALATE
  20. MELATONIN [Concomitant]
     Active Substance: MELATONIN
  21. METOPROLOL. [Concomitant]
     Active Substance: METOPROLOL
  22. TORSEMIDE. [Concomitant]
     Active Substance: TORSEMIDE
  23. PROTONIX [Concomitant]
     Active Substance: PANTOPRAZOLE SODIUM
  24. MULTIVITAMIN [Concomitant]
     Active Substance: VITAMINS

REACTIONS (2)
  - Tachycardia [None]
  - Ventricular extrasystoles [None]

NARRATIVE: CASE EVENT DATE: 20180801
